FAERS Safety Report 23835759 (Version 1)
Quarter: 2024Q2

REPORT INFORMATION
  Report Type: Report from Study
  Country: US (occurrence: US)
  Receive Date: 20240509
  Receipt Date: 20240509
  Transmission Date: 20240716
  Serious: Yes (Hospitalization, Other)
  Sender: FDA-Public Use
  Company Number: US-MYOVANT SCIENCES GMBH-2024MYSCI0400901

PATIENT
  Age: 64 Year
  Sex: Male

DRUGS (3)
  1. TADALAFIL [Suspect]
     Active Substance: TADALAFIL
     Indication: Product used for unknown indication
     Route: 065
  2. RELUGOLIX [Suspect]
     Active Substance: RELUGOLIX
     Indication: Prostate cancer
     Dosage: 360 MILLIGRAM, ONE TIME DOSE
     Route: 048
     Dates: start: 20230808, end: 20230808
  3. RELUGOLIX [Suspect]
     Active Substance: RELUGOLIX
     Indication: Prostate cancer
     Dosage: 120 MILLIGRAM, QD
     Route: 048
     Dates: start: 20230809

REACTIONS (6)
  - Surgery [Unknown]
  - Thrombosis [Unknown]
  - Catheter placement [Unknown]
  - Urine output increased [Unknown]
  - Dysstasia [Unknown]
  - Catheter removal [Recovered/Resolved]
